FAERS Safety Report 19273202 (Version 1)
Quarter: 2021Q2

REPORT INFORMATION
  Report Type: Spontaneous
  Country: BR (occurrence: BR)
  Receive Date: 20210519
  Receipt Date: 20210519
  Transmission Date: 20210717
  Serious: Yes (Hospitalization)
  Sender: FDA-Public Use
  Company Number: BR-NOVOPROD-813256

PATIENT
  Age: 45 Year
  Sex: Male
  Weight: 120 kg

DRUGS (6)
  1. INSULATARD HM [Suspect]
     Active Substance: INSULIN HUMAN
     Indication: DIABETES MELLITUS
     Dosage: 38 IU, QD(25U INSULIN IN COFFEE, 05U AT LUNCH AND 08 U AT SUPPER)
     Route: 065
  2. ALOPURINOL [Concomitant]
     Active Substance: ALLOPURINOL
     Dosage: 100 MG, QD
     Route: 065
  3. SITAGLIPTIN [Concomitant]
     Active Substance: SITAGLIPTIN
     Dosage: 50 MG, QD
     Route: 065
  4. METFORMIN [Concomitant]
     Active Substance: METFORMIN HYDROCHLORIDE
     Dosage: 1 G, QD
     Route: 065
  5. VALSARTAN. [Concomitant]
     Active Substance: VALSARTAN
     Dosage: 360 MG, QD
     Route: 065
  6. DULOXETINA [DULOXETINE] [Concomitant]
     Active Substance: DULOXETINE
     Dosage: 30 MG, QD
     Route: 065

REACTIONS (4)
  - Hyperglycaemia [Unknown]
  - Diabetic ketoacidosis [Recovered/Resolved]
  - Vision blurred [Unknown]
  - Treatment noncompliance [Unknown]

NARRATIVE: CASE EVENT DATE: 202012
